FAERS Safety Report 5631044-X (Version None)
Quarter: 2008Q1

REPORT INFORMATION
  Report Type: 
  Country: None (occurrence: None)
  Receive Date: 20080219
  Receipt Date: 20080211
  Transmission Date: 20080703
  Serious: No
  Sender: FDA-Public Use
  Company Number: US-GENENTECH-255320

PATIENT
  Sex: Male
  Weight: 89 kg

DRUGS (7)
  1. BEVACIZUMAB [Suspect]
     Indication: GLIOMA
     Dosage: UNK, UNKNOWN
     Route: 065
  2. ENZASTAURIN [Concomitant]
     Indication: GLIOMA
  3. LISINOPRIL [Concomitant]
     Indication: DRUG USE FOR UNKNOWN INDICATION
  4. UREA CREAM [Concomitant]
     Indication: DRUG USE FOR UNKNOWN INDICATION
  5. AQUAPHOR OINTMENT [Concomitant]
     Indication: DRUG USE FOR UNKNOWN INDICATION
  6. KEPPRA [Concomitant]
     Indication: DRUG USE FOR UNKNOWN INDICATION
  7. DECADRON [Concomitant]
     Indication: DRUG USE FOR UNKNOWN INDICATION

REACTIONS (1)
  - XEROSIS [None]
